FAERS Safety Report 6637634-X (Version None)
Quarter: 2010Q1

REPORT INFORMATION
  Report Type: 
  Country: None (occurrence: None)
  Receive Date: 20100301
  Receipt Date: 20091103
  Transmission Date: 20100710
  Serious: Yes (Other)
  Sender: FDA-Public Use
  Company Number: RB-23925-2009

PATIENT
  Age: 17 Year
  Sex: Female

DRUGS (1)
  1. SUBOXONE [Suspect]
     Indication: EUPHORIC MOOD
     Dosage: USING VARIOUS DAILY DOSES NASAL
     Route: 045
     Dates: start: 20091001

REACTIONS (3)
  - INTENTIONAL DRUG MISUSE [None]
  - THERAPY NAIVE [None]
  - VOMITING [None]
